FAERS Safety Report 9139312 (Version 2)
Quarter: 2013Q4

REPORT INFORMATION
  Report Type: Spontaneous
  Country: US (occurrence: US)
  Receive Date: 20130305
  Receipt Date: 20131219
  Transmission Date: 20140711
  Serious: Yes (Other)
  Sender: FDA-Public Use
  Company Number: US-PFIZER INC-2013073154

PATIENT
  Sex: Female

DRUGS (1)
  1. CHANTIX [Suspect]
     Indication: SMOKING CESSATION THERAPY
     Dosage: UNK

REACTIONS (10)
  - Road traffic accident [Unknown]
  - Loss of consciousness [Unknown]
  - Fall [Unknown]
  - Depression [Unknown]
  - Malaise [Unknown]
  - Dizziness [Unknown]
  - Tinnitus [Unknown]
  - Blood pressure fluctuation [Unknown]
  - Withdrawal syndrome [Unknown]
  - Mood swings [Unknown]
